FAERS Safety Report 19805153 (Version 2)
Quarter: 2022Q2

REPORT INFORMATION
  Report Type: Report from Study
  Country: DE (occurrence: DE)
  Receive Date: 20210908
  Receipt Date: 20220520
  Transmission Date: 20220721
  Serious: Yes (Other)
  Sender: FDA-Public Use
  Company Number: None

PATIENT
  Age: 40 Year
  Sex: Female

DRUGS (13)
  1. ACYCLOVIR [Suspect]
     Active Substance: ACYCLOVIR
     Indication: Product used for unknown indication
     Dosage: UNKNOWN
     Route: 065
  2. OCREVUS [Suspect]
     Active Substance: OCRELIZUMAB
     Indication: Primary progressive multiple sclerosis
     Route: 042
     Dates: start: 20190806
  3. ATOSIL [Concomitant]
     Indication: Product used for unknown indication
  4. MIRABEGRON [Concomitant]
     Active Substance: MIRABEGRON
     Indication: Product used for unknown indication
     Dosage: UNKNOWN
  5. CORTISONE [Concomitant]
     Active Substance: CORTISONE
     Indication: Premedication
     Dosage: UNKNOWN
     Dates: start: 20200305, end: 20200305
  6. DULOXETINE [Concomitant]
     Active Substance: DULOXETINE
     Indication: Product used for unknown indication
     Dosage: UNKNOWN
  7. ESCITALOPRAM [Concomitant]
     Active Substance: ESCITALOPRAM OXALATE
     Indication: Product used for unknown indication
  8. LEVOTHYROXINE SODIUM [Concomitant]
     Active Substance: LEVOTHYROXINE SODIUM
     Indication: Product used for unknown indication
  9. DIMETHYL SULFONE [Concomitant]
     Active Substance: DIMETHYL SULFONE
     Indication: Product used for unknown indication
     Dosage: UNKNOWN
  10. PYOLYSIN [Concomitant]
     Indication: Wound
     Dosage: UNKNOWN
  11. SELENASE [Concomitant]
     Indication: Product used for unknown indication
     Dosage: UNKNOWN
  12. THYROX [Concomitant]
     Indication: Product used for unknown indication
     Dosage: UNKNOWN
  13. TROSPIUM CHLORIDE [Concomitant]
     Active Substance: TROSPIUM CHLORIDE
     Indication: Product used for unknown indication
     Dosage: UNKNOWN

REACTIONS (19)
  - Dry skin [Recovered/Resolved]
  - Prurigo [Not Recovered/Not Resolved]
  - B-lymphocyte count increased [Recovered/Resolved]
  - Multiple sclerosis [Not Recovered/Not Resolved]
  - Rhinorrhoea [Recovered/Resolved]
  - Dermatitis allergic [Unknown]
  - Fatigue [Recovered/Resolved]
  - Urinary incontinence [Not Recovered/Not Resolved]
  - Alopecia [Recovered/Resolved]
  - Reaction to excipient [Not Recovered/Not Resolved]
  - Hot flush [Recovered/Resolved]
  - Sciatica [Not Recovered/Not Resolved]
  - Genital tract inflammation [Recovered/Resolved]
  - Skin odour abnormal [Recovered/Resolved]
  - Hypoaesthesia [Not Recovered/Not Resolved]
  - Burning sensation [Not Recovered/Not Resolved]
  - Hypersensitivity [Not Recovered/Not Resolved]
  - Genital herpes [Recovered/Resolved]
  - Vulvovaginitis [Not Recovered/Not Resolved]

NARRATIVE: CASE EVENT DATE: 20190806
